FAERS Safety Report 17997221 (Version 5)
Quarter: 2023Q2

REPORT INFORMATION
  Report Type: Report from Study
  Country: JP (occurrence: JP)
  Receive Date: 20200709
  Receipt Date: 20230421
  Transmission Date: 20230721
  Serious: Yes (Hospitalization)
  Sender: FDA-Public Use
  Company Number: JP-ABBVIE-18K-087-2435196-00

PATIENT
  Age: 75 Year
  Sex: Female

DRUGS (12)
  1. CARBIDOPA\LEVODOPA [Suspect]
     Active Substance: CARBIDOPA\LEVODOPA
     Indication: Parkinson^s disease
     Dosage: MD: 4.0 ML CD: 1.2 ML / HR FOR 16 HRS ED: 1.0 ML / TIME
     Route: 050
     Dates: start: 20180530, end: 20180603
  2. CARBIDOPA\LEVODOPA [Suspect]
     Active Substance: CARBIDOPA\LEVODOPA
     Dosage: MD: 4.0 ML CD: 1.5 ML / HR FOR 16 HRS ED: 1.0 ML / TIME
     Route: 050
     Dates: start: 20180604, end: 20180610
  3. CARBIDOPA\LEVODOPA [Suspect]
     Active Substance: CARBIDOPA\LEVODOPA
     Dosage: MD: 4.0 ML CD: 1.8 ML / HR FOR 16 HRS ED: 1.0 ML / TIME
     Route: 050
     Dates: start: 20180611, end: 20180613
  4. CARBIDOPA\LEVODOPA [Suspect]
     Active Substance: CARBIDOPA\LEVODOPA
     Dosage: MD: 6.0 ML CD: 2.1 ML / HR FOR 16 HRS ED: 1.0 ML / TIME
     Route: 050
     Dates: start: 20180614, end: 20180615
  5. CARBIDOPA\LEVODOPA [Suspect]
     Active Substance: CARBIDOPA\LEVODOPA
     Dosage: MD: 8.0 ML CD: 2.3 ML / HR FOR16 HRS ED: 1.0 ML / TIME
     Route: 050
     Dates: start: 20180616, end: 20180619
  6. CARBIDOPA\LEVODOPA [Suspect]
     Active Substance: CARBIDOPA\LEVODOPA
     Dosage: MD: 8.0 ML CD: 2.1 ML / HR FOR16 HRS ED: 1.0 ML / TIME
     Route: 050
     Dates: start: 20180620, end: 20180621
  7. CARBIDOPA\LEVODOPA [Suspect]
     Active Substance: CARBIDOPA\LEVODOPA
     Dosage: MD: 8.0 ML CD:1.9 ML / HR FOR16 HRS ED: 1.0 ML / TIME
     Route: 050
     Dates: start: 20180622, end: 20180819
  8. CARBIDOPA\LEVODOPA [Suspect]
     Active Substance: CARBIDOPA\LEVODOPA
     Dosage: MD: 8.0 ML CD: 1.9 ML/HR FOR 16HRS
     Route: 050
     Dates: start: 20180912, end: 20190326
  9. CARBIDOPA\LEVODOPA [Suspect]
     Active Substance: CARBIDOPA\LEVODOPA
     Dosage: MD: 8.5 ML?CD: 1.9 ML/HR FOR 16 HRS?ED: 1.0 ML/UNIT FOR 1 TO 2 TIMES
     Route: 050
     Dates: start: 20190326
  10. CARBIDOPA\LEVODOPA [Concomitant]
     Active Substance: CARBIDOPA\LEVODOPA
     Indication: Parkinson^s disease
     Route: 048
     Dates: start: 20180622
  11. DONEPEZIL HYDROCHLORIDE [Concomitant]
     Active Substance: DONEPEZIL HYDROCHLORIDE
     Indication: Product used for unknown indication
     Route: 048
  12. AMANTADINE HYDROCHLORIDE [Concomitant]
     Active Substance: AMANTADINE HYDROCHLORIDE
     Indication: Parkinson^s disease
     Route: 048
     Dates: start: 20190520

REACTIONS (15)
  - Fracture [Not Recovered/Not Resolved]
  - Device issue [Unknown]
  - Intussusception [Recovering/Resolving]
  - Abdominal pain [Recovering/Resolving]
  - Fall [Unknown]
  - Device physical property issue [Recovered/Resolved]
  - Device kink [Recovered/Resolved]
  - Muscular weakness [Unknown]
  - Weight decreased [Unknown]
  - Vomiting [Unknown]
  - Device occlusion [Unknown]
  - Bezoar [Unknown]
  - Tremor [Unknown]
  - Dyskinesia [Recovering/Resolving]
  - Incorrect dose administered [Unknown]

NARRATIVE: CASE EVENT DATE: 20180616
